FAERS Safety Report 9106036 (Version 1)
Quarter: 2013Q1

REPORT INFORMATION
  Report Type: Spontaneous
  Country: AU (occurrence: AU)
  Receive Date: 20130220
  Receipt Date: 20130220
  Transmission Date: 20140127
  Serious: Yes (Other)
  Sender: FDA-Public Use
  Company Number: AU-PFIZER INC-2013060432

PATIENT
  Age: 6 Year
  Sex: Male

DRUGS (1)
  1. SALAZOPYRIN [Suspect]
     Dosage: 500 MG, UNK

REACTIONS (2)
  - Dyspnoea [Unknown]
  - Pruritus [Unknown]
